FAERS Safety Report 12750110 (Version 1)
Quarter: 2016Q3

REPORT INFORMATION
  Report Type: Spontaneous
  Country: US (occurrence: US)
  Receive Date: 20160915
  Receipt Date: 20160915
  Transmission Date: 20161109
  Serious: No
  Sender: FDA-Public Use
  Company Number: None

PATIENT
  Age: 20 Year
  Sex: Female
  Weight: 68.85 kg

DRUGS (4)
  1. REMICADE [Suspect]
     Active Substance: INFLIXIMAB
     Indication: COLITIS ULCERATIVE
     Dosage: 350 MG OTHER INTRAVENOUS DRIP
     Route: 041
  2. PREDNISONE. [Concomitant]
     Active Substance: PREDNISONE
  3. IRON [Concomitant]
     Active Substance: IRON
  4. LIALDA [Concomitant]
     Active Substance: MESALAMINE

REACTIONS (1)
  - Pruritus [None]

NARRATIVE: CASE EVENT DATE: 20160915
